FAERS Safety Report 19110938 (Version 4)
Quarter: 2021Q2

REPORT INFORMATION
  Report Type: Spontaneous
  Country: GB (occurrence: GB)
  Receive Date: 20210408
  Receipt Date: 20210624
  Transmission Date: 20210717
  Serious: Yes (Other)
  Sender: FDA-Public Use
  Company Number: GB-BAYER-2021-116385

PATIENT
  Sex: Female

DRUGS (1)
  1. LEVONORGESTREL IUS [UNKNOWN] [Suspect]
     Active Substance: LEVONORGESTREL
     Dosage: UNK
     Route: 015
     Dates: end: 20210308

REACTIONS (3)
  - Medical device entrapment [None]
  - Complication of device removal [Recovered/Resolved]
  - Device breakage [None]

NARRATIVE: CASE EVENT DATE: 202103
